FAERS Safety Report 9815503 (Version 1)
Quarter: 2014Q1

REPORT INFORMATION
  Report Type: Spontaneous
  Country: US (occurrence: US)
  Receive Date: 20140114
  Receipt Date: 20140114
  Transmission Date: 20141002
  Serious: No
  Sender: FDA-Public Use
  Company Number: US-PFIZER INC-2014007315

PATIENT
  Age: 78 Year
  Sex: Female
  Weight: 74.8 kg

DRUGS (4)
  1. NORVASC [Suspect]
     Indication: HYPERTENSION
     Dosage: 20 MG, DAILY
     Route: 048
  2. LOSARTAN POTASSIUM [Suspect]
     Indication: HYPERTENSION
     Dosage: UNK, 1X/DAY
  3. IRBESARTAN [Suspect]
     Indication: HYPERTENSION
     Dosage: UNK
  4. AVAPRO [Suspect]
     Indication: HYPERTENSION
     Dosage: UNK

REACTIONS (1)
  - Renal disorder [Unknown]
